FAERS Safety Report 7919985-1 (Version None)
Quarter: 2011Q4

REPORT INFORMATION
  Report Type: 
  Country: None (occurrence: None)
  Receive Date: 20111117
  Receipt Date: 20111111
  Transmission Date: 20120403
  Serious: Yes (Other)
  Sender: FDA-Public Use
  Company Number: CA-PFIZER INC-2011277176

PATIENT

DRUGS (2)
  1. ZIPRASIDONE HYDROCHLORIDE [Suspect]
     Dosage: UNK
  2. CLOZAPINE [Interacting]
     Dosage: LOW DOSE

REACTIONS (2)
  - DRUG INTERACTION [None]
  - PSYCHOTIC BEHAVIOUR [None]
